FAERS Safety Report 15446499 (Version 1)
Quarter: 2018Q3

REPORT INFORMATION
  Report Type: Spontaneous
  Country: US (occurrence: US)
  Receive Date: 20180928
  Receipt Date: 20180928
  Transmission Date: 20181010
  Serious: No
  Sender: FDA-Public Use
  Company Number: US-AMGEN-USASP2018095907

PATIENT
  Age: 73 Year
  Sex: Female

DRUGS (2)
  1. CALCIUM [Concomitant]
     Active Substance: CALCIUM
  2. PROLIA [Suspect]
     Active Substance: DENOSUMAB
     Indication: OSTEOPOROSIS POSTMENOPAUSAL
     Dosage: 1 DF, Q6MO
     Route: 065
     Dates: start: 201801

REACTIONS (6)
  - Influenza like illness [Recovered/Resolved]
  - Musculoskeletal pain [Unknown]
  - Myalgia [Unknown]
  - Mobility decreased [Unknown]
  - Sleep disorder due to a general medical condition [Unknown]
  - Pain in extremity [Unknown]

NARRATIVE: CASE EVENT DATE: 2018
